FAERS Safety Report 14398842 (Version 1)
Quarter: 2018Q1

REPORT INFORMATION
  Report Type: Spontaneous
  Country: US (occurrence: US)
  Receive Date: 20180117
  Receipt Date: 20180117
  Transmission Date: 20180509
  Serious: No
  Sender: FDA-Public Use
  Company Number: US-TEVA-2017-US-835449

PATIENT
  Sex: Female

DRUGS (1)
  1. SALBUTAMOL W/IPRATROPIUM [Suspect]
     Active Substance: ALBUTEROL\IPRATROPIUM
     Dosage: STRENGTH: 0.5 MG / 3 MG
     Route: 065

REACTIONS (2)
  - Epistaxis [Unknown]
  - Product taste abnormal [Unknown]
